FAERS Safety Report 18708906 (Version 2)
Quarter: 2021Q1

REPORT INFORMATION
  Report Type: Spontaneous
  Country: IL (occurrence: IL)
  Receive Date: 20210106
  Receipt Date: 20210119
  Transmission Date: 20210419
  Serious: Yes (Hospitalization, Other)
  Sender: FDA-Public Use
  Company Number: IL-TAKEDA-2020TUS060415

PATIENT
  Sex: Female

DRUGS (4)
  1. GATTEX [Suspect]
     Active Substance: TEDUGLUTIDE\WATER
     Indication: GASTROINTESTINAL ADENOCARCINOMA
     Dosage: UNK
     Route: 065
     Dates: start: 202005
  2. GATTEX [Suspect]
     Active Substance: TEDUGLUTIDE\WATER
     Indication: GASTROINTESTINAL ADENOCARCINOMA
     Dosage: UNK
     Route: 065
     Dates: start: 202005
  3. GATTEX [Suspect]
     Active Substance: TEDUGLUTIDE\WATER
     Indication: GASTROINTESTINAL ADENOCARCINOMA
     Dosage: UNK
     Route: 065
     Dates: start: 202005
  4. GATTEX [Suspect]
     Active Substance: TEDUGLUTIDE\WATER
     Indication: GASTROINTESTINAL ADENOCARCINOMA
     Dosage: UNK
     Route: 065
     Dates: start: 202005

REACTIONS (3)
  - Pain [Unknown]
  - Metabolic acidosis [Unknown]
  - Urinary tract stoma complication [Unknown]
